FAERS Safety Report 23176283 (Version 1)
Quarter: 2023Q4

REPORT INFORMATION
  Report Type: Spontaneous
  Country: US (occurrence: US)
  Receive Date: 20231113
  Receipt Date: 20231113
  Transmission Date: 20240109
  Serious: Yes (Hospitalization, Other)
  Sender: FDA-Public Use
  Company Number: US-PADAGIS-2023PAD01609

PATIENT

DRUGS (8)
  1. CYCLOSPORINE [Suspect]
     Active Substance: CYCLOSPORINE
     Indication: Autologous haematopoietic stem cell transplant
     Dosage: UNK
     Route: 065
  2. DEXAMETHASONE [Suspect]
     Active Substance: DEXAMETHASONE
     Indication: Autologous haematopoietic stem cell transplant
     Dosage: UNK
     Route: 065
  3. ETOPOSIDE [Concomitant]
     Active Substance: ETOPOSIDE
     Indication: Bone marrow conditioning regimen
     Dosage: 60 MG/KG
     Route: 065
  4. PREDNISONE [Concomitant]
     Active Substance: PREDNISONE
     Indication: Peripheral T-cell lymphoma unspecified
     Dosage: UNK
     Route: 065
  5. CYCLOPHOSPHAMIDE\DOXORUBICIN\PREDNISONE\VINCRISTINE [Concomitant]
     Active Substance: CYCLOPHOSPHAMIDE\DOXORUBICIN\PREDNISONE\VINCRISTINE
     Indication: Peripheral T-cell lymphoma unspecified
     Dosage: UNK, 6 CYCLES
     Route: 065
  6. METHOTREXATE [Concomitant]
     Active Substance: METHOTREXATE
     Indication: Peripheral T-cell lymphoma unspecified
     Dosage: UNK, 2 CYCLES
     Route: 065
  7. CISPLATIN\CYTARABINE\DEXAMETHASONE [Concomitant]
     Active Substance: CISPLATIN\CYTARABINE\DEXAMETHASONE
     Indication: Peripheral T-cell lymphoma unspecified
     Dosage: UNK (SALVEGE THERAPY)
     Route: 065
  8. GRANULOCYTE COLONY-STIMULATING FACTOR NOS [Concomitant]
     Active Substance: GRANULOCYTE COLONY-STIMULATING FACTOR NOS
     Indication: Peripheral T-cell lymphoma unspecified
     Dosage: UNK
     Route: 065

REACTIONS (7)
  - Pneumonia [Unknown]
  - Clostridium difficile infection [Unknown]
  - Enterococcal infection [Unknown]
  - Mucosal inflammation [Unknown]
  - Diarrhoea [Unknown]
  - Staphylococcal infection [Unknown]
  - Product use in unapproved indication [Unknown]
